FAERS Safety Report 21584737 (Version 5)
Quarter: 2024Q4

REPORT INFORMATION
  Report Type: Spontaneous
  Country: IN (occurrence: IN)
  Receive Date: 20221111
  Receipt Date: 20241025
  Transmission Date: 20250115
  Serious: Yes (Other)
  Sender: PFIZER
  Company Number: IN-PFIZER INC-PV202200031402

PATIENT
  Age: 62 Year
  Sex: Female

DRUGS (11)
  1. LORLATINIB [Suspect]
     Active Substance: LORLATINIB
     Indication: Non-small cell lung cancer
     Dosage: 100 MG, 1X/DAY
     Route: 048
  2. LORLATINIB [Suspect]
     Active Substance: LORLATINIB
     Dosage: 50 MG, 1X/DAY
     Route: 048
  3. CCM [Concomitant]
     Dosage: 1 DF, 1-1
  4. SPIRONOLACTONE\TORSEMIDE [Concomitant]
     Active Substance: SPIRONOLACTONE\TORSEMIDE
     Dosage: 10 MG, 1X/DAY
  5. GABAPIN NT [Concomitant]
     Dosage: 200 MG, X-1
  6. GABAPIN NT [Concomitant]
     Dosage: 400/10, 1X/DAY (HORA SOMNI)
  7. LEVETIRACETAM [Concomitant]
     Active Substance: LEVETIRACETAM
     Dosage: UNK, 2X/DAY
  8. VITAMINS [Concomitant]
     Active Substance: VITAMINS
     Dosage: 1 MG, 1X/DAY
  9. SOMPRAZ IT [Concomitant]
     Dosage: UNK, 1X/DAY
  10. VELOZ D [Concomitant]
     Dosage: UNK, 1X/DAY BBF
  11. CHOLECALCIFEROL [Concomitant]
     Active Substance: CHOLECALCIFEROL
     Dosage: VIT-D 60K ONE TAB MONTHLY ONCE

REACTIONS (9)
  - Diabetes mellitus [Unknown]
  - Arthralgia [Unknown]
  - Fatigue [Unknown]
  - Swelling [Unknown]
  - Hypertension [Unknown]
  - Asthenia [Unknown]
  - Gait disturbance [Unknown]
  - Osteoarthritis [Unknown]
  - Back pain [Unknown]
